FAERS Safety Report 9307132 (Version 2)
Quarter: 2013Q2

REPORT INFORMATION
  Report Type: Report from Study
  Country: GB (occurrence: GB)
  Receive Date: 20130524
  Receipt Date: 20130611
  Transmission Date: 20140414
  Serious: Yes (Hospitalization)
  Sender: FDA-Public Use
  Company Number: GB-AMGEN-GBRCT2013036606

PATIENT
  Age: 57 Year
  Sex: Female

DRUGS (2)
  1. ETANERCEPT [Suspect]
     Indication: PRODUCT USED FOR UNKNOWN INDICATION
     Dosage: 25 MG, 2 TIMES/WK
     Dates: start: 20080509, end: 20120615
  2. METHOTREXATE [Concomitant]
     Dosage: UNK
     Dates: start: 20111215

REACTIONS (2)
  - Device related infection [Recovered/Resolved]
  - Arthritis infective [Recovered/Resolved]
